FAERS Safety Report 8788922 (Version 1)
Quarter: 2012Q4

REPORT INFORMATION
  Report Type: Report from Study
  Country: JP (occurrence: JP)
  Receive Date: 20120915
  Receipt Date: 20120915
  Transmission Date: 20130627
  Serious: Yes (Hospitalization)
  Sender: FDA-Public Use
  Company Number: JP-009507513-1209JPN003246

PATIENT

DRUGS (8)
  1. PEGINTRON [Suspect]
     Indication: HEPATITIS C
     Dosage: 1.5 Microgram per kilogram, qw
     Route: 058
     Dates: start: 20120517, end: 20120719
  2. PEGINTRON [Suspect]
     Dosage: 0.75 Microgram per kilogram, qw
     Route: 058
     Dates: start: 20120726
  3. REBETOL [Suspect]
     Indication: HEPATITIS C
     Dosage: 800 mg, qd
     Route: 048
     Dates: start: 20120517, end: 20120724
  4. REBETOL [Suspect]
     Dosage: 600 mg, qd
     Route: 048
     Dates: start: 20120727
  5. TELAVIC [Suspect]
     Indication: HEPATITIS C
     Dosage: Dose: 2250 mg, Cumulative dose: 27000 mg
     Route: 048
     Dates: start: 20120517, end: 20120724
  6. GLYCRON (GLICLAZIDE) [Concomitant]
     Indication: HEPATITIS C
     Dosage: 6 DF, qd
     Route: 048
  7. LOXONIN [Concomitant]
     Indication: PROPHYLAXIS
     Dosage: Formulation: Por, It is single use during 60 mg/day
     Route: 048
     Dates: start: 20120517
  8. CYTOTEC [Concomitant]
     Indication: PROPHYLAXIS
     Dosage: Formulation: por, It  is single use during 200mg/day
     Route: 048
     Dates: start: 20120517

REACTIONS (1)
  - Hepatic encephalopathy [Recovered/Resolved]
